FAERS Safety Report 8921334 (Version 2)
Quarter: 2012Q4

REPORT INFORMATION
  Report Type: 
  Country: JP (occurrence: JP)
  Receive Date: 20121121
  Receipt Date: 20121205
  Transmission Date: 20130627
  Serious: Yes (Death)
  Sender: FDA-Public Use
  Company Number: JP-JNJFOC-20121109926

PATIENT
  Age: 81 Year
  Sex: Male

DRUGS (9)
  1. TRAMCET [Suspect]
     Indication: BACK PAIN
     Dosage: 3 doses 1 per day
     Route: 048
     Dates: start: 20120831, end: 20120906
  2. MIRAPEX [Suspect]
     Indication: PRODUCT USED FOR UNKNOWN INDICATION
     Route: 048
     Dates: start: 20120831
  3. LEVODOPA - CARBIDOPA [Concomitant]
     Route: 048
  4. NAUZELIN [Concomitant]
     Route: 065
  5. BLOPRESS [Concomitant]
     Route: 048
  6. ADALAT CR [Concomitant]
     Route: 048
  7. HARNAL [Concomitant]
     Route: 048
  8. DICLOFENAC SODIUM [Concomitant]
     Route: 048
  9. BENET [Concomitant]
     Route: 048

REACTIONS (2)
  - Cardiac failure [Fatal]
  - Dizziness [Recovered/Resolved]
